FAERS Safety Report 23741596 (Version 1)
Quarter: 2024Q2

REPORT INFORMATION
  Report Type: Spontaneous
  Country: US (occurrence: US)
  Receive Date: 20240415
  Receipt Date: 20240415
  Transmission Date: 20240716
  Serious: No
  Sender: FDA-Public Use
  Company Number: US-JNJFOC-20240424009

PATIENT
  Age: 4 Decade
  Sex: Male

DRUGS (4)
  1. SPRAVATO [Suspect]
     Active Substance: ESKETAMINE
     Indication: Product used for unknown indication
     Dosage: T26 OR 28 MG AND  THEN HAD TWO OF THEM FOR HIS SECOND DOSE
     Dates: start: 2023, end: 202311
  2. SPRAVATO [Suspect]
     Active Substance: ESKETAMINE
     Dosage: TWICE PER WEEK AND THEN ONCE A WEEK FOR A COUPLE OF WEEKS
     Dates: start: 2023, end: 202311
  3. PHENOBARBITAL [Suspect]
     Active Substance: PHENOBARBITAL
     Indication: Product used for unknown indication
     Route: 065
  4. KLONOPIN [Concomitant]
     Active Substance: CLONAZEPAM
     Route: 065

REACTIONS (3)
  - Anxiety [Unknown]
  - Depression [Not Recovered/Not Resolved]
  - Weight decreased [Unknown]
